FAERS Safety Report 15571620 (Version 2)
Quarter: 2019Q3

REPORT INFORMATION
  Report Type: Spontaneous
  Country: US (occurrence: US)
  Receive Date: 20181031
  Receipt Date: 20190813
  Transmission Date: 20191004
  Serious: No
  Sender: FDA-Public Use
  Company Number: US-BRISTOL-MYERS SQUIBB COMPANY-BMS-2018-100165

PATIENT
  Sex: Male
  Weight: 86.1 kg

DRUGS (3)
  1. ELIQUIS [Suspect]
     Active Substance: APIXABAN
     Indication: DEEP VEIN THROMBOSIS
     Dosage: 5 MG, BID
     Route: 048
     Dates: start: 2015
  2. ELIQUIS [Suspect]
     Active Substance: APIXABAN
     Indication: THROMBOSIS
     Dosage: 2.5 MILLIGRAM, BID
     Route: 048
  3. NORCALCIN [Concomitant]
     Indication: BACK PAIN
     Dosage: UNK
     Route: 065

REACTIONS (7)
  - Intentional product misuse [Unknown]
  - Secretion discharge [Unknown]
  - Dizziness [Unknown]
  - Nasopharyngitis [Unknown]
  - Fatigue [Unknown]
  - Asthenia [Unknown]
  - Respiratory tract congestion [Unknown]

NARRATIVE: CASE EVENT DATE: 2018
